FAERS Safety Report 9190843 (Version 7)
Quarter: 2014Q1

REPORT INFORMATION
  Report Type: Spontaneous
  Country: US (occurrence: US)
  Receive Date: 20130326
  Receipt Date: 20140307
  Transmission Date: 20141002
  Serious: Yes (Hospitalization)
  Sender: FDA-Public Use
  Company Number: US-GLAXOSMITHKLINE-A1017120A

PATIENT
  Age: 46 Year
  Sex: Female

DRUGS (2)
  1. FLOLAN [Suspect]
     Indication: PULMONARY ARTERIAL HYPERTENSION
     Dosage: 6.75NGKM CONTINUOUS
     Route: 042
     Dates: start: 20040908
  2. COUMADIN [Concomitant]

REACTIONS (6)
  - Lower respiratory tract infection [Unknown]
  - Thrombosis in device [Unknown]
  - Cyst [Unknown]
  - Device infusion issue [Unknown]
  - Central venous catheterisation [Unknown]
  - Investigation [Unknown]
